FAERS Safety Report 11966556 (Version 1)
Quarter: 2016Q1

REPORT INFORMATION
  Report Type: Spontaneous
  Country: US (occurrence: US)
  Receive Date: 20160127
  Receipt Date: 20160127
  Transmission Date: 20160526
  Serious: Yes (Other)
  Sender: FDA-Public Use
  Company Number: US-B.I. PHARMACEUTICALS,INC./RIDGEFIELD-2016-BI-03820BI

PATIENT
  Age: 58 Year
  Sex: Female

DRUGS (1)
  1. ZANTAC [Suspect]
     Active Substance: RANITIDINE HYDROCHLORIDE
     Indication: PRODUCT USED FOR UNKNOWN INDICATION
     Dosage: DOSE PER APPLICATION AND DAILY DOSE: 450MG IN 3 EQUALLY DIVIDED DOSES OVER A PERIOD OF 21 HOURS
     Route: 065

REACTIONS (3)
  - Anaemia [Recovered/Resolved]
  - Hypergastrinaemia [Recovered/Resolved]
  - Gastrointestinal haemorrhage [Recovered/Resolved]
